FAERS Safety Report 24395915 (Version 3)
Quarter: 2025Q1

REPORT INFORMATION
  Report Type: Report from Study
  Country: US (occurrence: US)
  Receive Date: 20241004
  Receipt Date: 20250320
  Transmission Date: 20250408
  Serious: Yes (Hospitalization)
  Sender: TAKEDA
  Company Number: US-TAKEDA-2024TUS096519

PATIENT
  Sex: Female

DRUGS (1)
  1. MARIBAVIR [Suspect]
     Active Substance: MARIBAVIR
     Indication: Cytomegalovirus infection
     Dosage: 400 MILLIGRAM, BID
     Dates: start: 20240925

REACTIONS (8)
  - Headache [Unknown]
  - Fatigue [Unknown]
  - Nausea [Unknown]
  - Feeling abnormal [Unknown]
  - Blood creatinine abnormal [Unknown]
  - Renal disorder [Unknown]
  - Poor quality sleep [Unknown]
  - Malaise [Unknown]
